FAERS Safety Report 4485047-1 (Version None)
Quarter: 2004Q3

REPORT INFORMATION
  Report Type: 
  Country: None (occurrence: None)
  Receive Date: 20040921
  Receipt Date: 20030730
  Transmission Date: 20050211
  Serious: Yes (Hospitalization, Other)
  Sender: FDA-Public Use
  Company Number: 163-20785-03070338

PATIENT
  Age: 59 Year
  Sex: Female

DRUGS (16)
  1. THALOMID [Suspect]
     Indication: MULTIPLE MYELOMA
     Dosage: 400 MG, DAILY, ORAL; 200 MG, DAILY, ORAL; 50 MG, DAILY, ORAL
     Route: 048
     Dates: start: 20030507, end: 20030515
  2. THALOMID [Suspect]
     Indication: MULTIPLE MYELOMA
     Dosage: 400 MG, DAILY, ORAL; 200 MG, DAILY, ORAL; 50 MG, DAILY, ORAL
     Route: 048
     Dates: start: 20030517, end: 20030723
  3. THALOMID [Suspect]
     Indication: MULTIPLE MYELOMA
     Dosage: 400 MG, DAILY, ORAL; 200 MG, DAILY, ORAL; 50 MG, DAILY, ORAL
     Route: 048
     Dates: start: 20030516
  4. VINCRISTINE [Suspect]
     Indication: MULTIPLE MYELOMA
     Dosage: 0.5 MG, DAILY, INTRAVENOUS
     Route: 042
     Dates: start: 20030512, end: 20030515
  5. ADRIAMYCIN PFS [Suspect]
     Indication: MULTIPLE MYELOMA
     Dosage: 16 MG, DAILY, INTRAVENOUS
     Route: 042
     Dates: start: 20030512, end: 20030515
  6. DEXAMETHASONE [Suspect]
     Indication: MULTIPLE MYELOMA
     Dosage: 40 MG, DAILY, ORAL; 40 MG, ORAL
     Route: 048
     Dates: start: 20030512, end: 20030515
  7. CYCLOPHOSPHAMIDE [Suspect]
     Indication: MULTIPLE MYELOMA
     Dosage: 688 MG, INTRAVENOUS
     Route: 042
     Dates: start: 20030616, end: 20030619
  8. ETOPOSIDE [Suspect]
     Indication: MULTIPLE MYELOMA
     Dosage: 68.8 MG, INTRAVENOUS
     Route: 042
     Dates: start: 20030616, end: 20030619
  9. CISPLATIN [Suspect]
     Indication: MULTIPLE MYELOMA
     Dosage: 25.8 MG, INTRAVENOUS
     Route: 042
     Dates: start: 20030616, end: 20030619
  10. MELPHALAN (MELPHALAN) (INJECTION) [Suspect]
     Indication: MULTIPLE MYELOMA
     Dosage: 200 MG, QD, INTRAVENOUS
     Route: 042
     Dates: start: 20031021
  11. ZOLOFT [Concomitant]
  12. LISINOPRIL [Concomitant]
  13. METOPROLOL TARTRATE [Concomitant]
  14. ACYCLOVIR [Concomitant]
  15. PROCRIT [Concomitant]
  16. REGLAN (EMTOCLOPRAMIDE) [Concomitant]

REACTIONS (29)
  - ANAEMIA [None]
  - ASTHENIA [None]
  - BACTERAEMIA [None]
  - CHILLS [None]
  - CYTOMEGALOVIRUS INFECTION [None]
  - DEHYDRATION [None]
  - DEPRESSION [None]
  - DIARRHOEA [None]
  - FEBRILE NEUTROPENIA [None]
  - FRACTURED SACRUM [None]
  - HYPOCALCAEMIA [None]
  - HYPOKALAEMIA [None]
  - HYPOMAGNESAEMIA [None]
  - HYPOTENSION [None]
  - LUNG INFILTRATION [None]
  - MARKEDLY REDUCED DIETARY INTAKE [None]
  - MUCOSAL INFLAMMATION [None]
  - NAUSEA [None]
  - NEUTROPENIA [None]
  - OESOPHAGEAL OBSTRUCTION [None]
  - PANCYTOPENIA [None]
  - PNEUMONIA [None]
  - PYREXIA [None]
  - SINUSITIS [None]
  - SKIN LESION [None]
  - STAPHYLOCOCCAL INFECTION [None]
  - SYNCOPE [None]
  - THROMBOCYTOPENIA [None]
  - VOMITING [None]
